FAERS Safety Report 8330541-6 (Version None)
Quarter: 2012Q2

REPORT INFORMATION
  Report Type: 
  Country: None (occurrence: None)
  Receive Date: 20120502
  Receipt Date: 20120404
  Transmission Date: 20120825
  Serious: No
  Sender: FDA-Public Use
  Company Number: US-AMGEN-USASP2012021535

PATIENT
  Sex: Male

DRUGS (2)
  1. ENBREL [Suspect]
     Indication: ANKYLOSING SPONDYLITIS
     Dosage: UNK
  2. HUMIRA [Concomitant]
     Dosage: UNK

REACTIONS (3)
  - ANKYLOSING SPONDYLITIS [None]
  - INJECTION SITE URTICARIA [None]
  - INJECTION SITE REACTION [None]
